FAERS Safety Report 10791407 (Version 1)
Quarter: 2015Q1

REPORT INFORMATION
  Report Type: Spontaneous
  Country: PH (occurrence: PH)
  Receive Date: 20150213
  Receipt Date: 20150213
  Transmission Date: 20150721
  Serious: Yes (Death, Other)
  Sender: FDA-Public Use
  Company Number: PH-009507513-1502PHL005510

PATIENT
  Age: 69 Year
  Sex: Male

DRUGS (1)
  1. HYZAAR [Suspect]
     Active Substance: HYDROCHLOROTHIAZIDE\LOSARTAN POTASSIUM
     Indication: DIABETES MELLITUS
     Dosage: 50/12.5MG ONCE A DAY
     Route: 048
     Dates: start: 2006

REACTIONS (1)
  - Myocardial infarction [Fatal]

NARRATIVE: CASE EVENT DATE: 20141120
